FAERS Safety Report 6583981-X (Version None)
Quarter: 2010Q1

REPORT INFORMATION
  Report Type: 
  Country: None (occurrence: None)
  Receive Date: 20100213
  Receipt Date: 20100213
  Transmission Date: 20100710
  Serious: Yes (Other)
  Sender: FDA-Public Use
  Company Number: None

PATIENT
  Age: 6 Year
  Sex: Female
  Weight: 40.8237 kg

DRUGS (5)
  1. SINGULAIR [Suspect]
     Indication: HYPERSENSITIVITY
     Dosage: 1 CHEWABLE TABLET ONCE A DAY PO
     Route: 048
  2. NASACORT [Concomitant]
  3. CONEX [Concomitant]
  4. PULMICORT [Concomitant]
  5. SORBUTUS [Concomitant]

REACTIONS (5)
  - AGGRESSION [None]
  - DEPENDENT PERSONALITY DISORDER [None]
  - DEPRESSED MOOD [None]
  - IRRITABILITY [None]
  - MUSCLE TWITCHING [None]
